FAERS Safety Report 9649364 (Version 6)
Quarter: 2015Q2

REPORT INFORMATION
  Report Type: Spontaneous
  Country: US (occurrence: None)
  Receive Date: 20131018
  Receipt Date: 20150420
  Transmission Date: 20150821
  Serious: Yes (Other)
  Sender: FDA-Public Use
  Company Number: AEGR000114

PATIENT
  Age: 61 Year
  Sex: Female
  Weight: 79.4 kg

DRUGS (14)
  1. JUXTAPID [Suspect]
     Active Substance: LOMITAPIDE MESYLATE
     Indication: TYPE IIA HYPERLIPIDAEMIA
     Route: 048
     Dates: start: 20130408, end: 201308
  2. PLAVIX (CLOPIDOGREL BISULFALE) [Concomitant]
  3. LISINOPRIL (LISINOPRIL) [Concomitant]
     Active Substance: LISINOPRIL
  4. BYSTOLIC (NEBIVOL HYDROCHLORIDE) [Concomitant]
  5. ASPIRIN (ACETYLSALICYLIC ACID) [Concomitant]
     Active Substance: ASPIRIN
  6. CO Q 10 (UBIDECARENONE) [Concomitant]
  7. ALPRAZOLAM. [Concomitant]
     Active Substance: ALPRAZOLAM
  8. FLEXERIL [Concomitant]
     Active Substance: CYCLOBENZAPRINE HYDROCHLORIDE
  9. COREG CR (CARVEDILOL) [Concomitant]
  10. EFFEXOR [Concomitant]
     Active Substance: VENLAFAXINE HYDROCHLORIDE
  11. ARMOUR THYROID (THYROID) [Concomitant]
  12. OMEGA 3 6 9 (OMEGA 9 FATTY ACIDS, 0MEGA-3 FATTY ACIDS, OMEGA-6 FATTY ACIDS) [Concomitant]
  13. PRILOSEC (OMEPRAZOLE MAGNESIUM) [Concomitant]
  14. VIT E (TOCOPHEROL) [Concomitant]

REACTIONS (3)
  - Aspartate aminotransferase increased [None]
  - Hepatic enzyme increased [None]
  - Alanine aminotransferase increased [None]

NARRATIVE: CASE EVENT DATE: 201308
